FAERS Safety Report 14589874 (Version 3)
Quarter: 2018Q2

REPORT INFORMATION
  Report Type: Other
  Country: IT (occurrence: IT)
  Receive Date: 20180302
  Receipt Date: 20180620
  Transmission Date: 20180711
  Serious: Yes (Hospitalization)
  Sender: FDA-Public Use
  Company Number: IT-STRIDES ARCOLAB LIMITED-2018SP001278

PATIENT

DRUGS (7)
  1. ACETYLSALICYLIC ACID W/ASCORBIC ACID [Suspect]
     Active Substance: ACETAMINOPHEN\ASCORBIC ACID
     Indication: NASOPHARYNGITIS
     Dosage: 500 MG, PER DAY
     Route: 048
     Dates: start: 20171023, end: 20171023
  2. BISOPROLOL FUMARATE. [Suspect]
     Active Substance: BISOPROLOL FUMARATE
     Indication: PRODUCT USED FOR UNKNOWN INDICATION
     Dosage: 2.5 MG, PER DAY
     Route: 065
  3. UROREC [Suspect]
     Active Substance: SILODOSIN
     Indication: PRODUCT USED FOR UNKNOWN INDICATION
     Dosage: 4 MG, PER DAY
     Route: 065
  4. ACETYLSALICYLIC ACID W/ASCORBIC ACID [Suspect]
     Active Substance: ACETAMINOPHEN\ASCORBIC ACID
     Dosage: DOSE RE-INTRODUCED, UNKNOWN
     Route: 048
  5. DUTASTERIDE. [Suspect]
     Active Substance: DUTASTERIDE
     Indication: PRODUCT USED FOR UNKNOWN INDICATION
     Dosage: 0.5 MG, PER DAY
     Route: 065
  6. TERAZOSIN HYDROCHLORIDE. [Suspect]
     Active Substance: TERAZOSIN HYDROCHLORIDE
     Indication: PRODUCT USED FOR UNKNOWN INDICATION
     Dosage: 5 MG, PER DAY
     Route: 065
  7. RAMIPRIL. [Suspect]
     Active Substance: RAMIPRIL
     Indication: PRODUCT USED FOR UNKNOWN INDICATION
     Dosage: 5 MG, PER DAY
     Route: 065

REACTIONS (3)
  - Dyspnoea [Recovered/Resolved]
  - Tongue oedema [Recovered/Resolved]
  - Swelling [Recovered/Resolved]

NARRATIVE: CASE EVENT DATE: 20171023
